FAERS Safety Report 9671267 (Version 1)
Quarter: 2013Q4

REPORT INFORMATION
  Report Type: Report from Study
  Country: US (occurrence: US)
  Receive Date: 20131106
  Receipt Date: 20131106
  Transmission Date: 20140711
  Serious: Yes (Hospitalization)
  Sender: FDA-Public Use
  Company Number: US-ABBVIE-13P-163-1163094-00

PATIENT
  Age: 44 Year
  Sex: Male
  Weight: 95.5 kg

DRUGS (15)
  1. HUMIRA [Suspect]
     Indication: CROHN^S DISEASE
     Dosage: LOADING DOSE
     Dates: start: 201306, end: 201306
  2. HUMIRA [Suspect]
     Dosage: LOADING DOSE
     Dates: start: 20131021, end: 20131021
  3. HUMIRA [Suspect]
     Dates: start: 20131028, end: 20131028
  4. ZESTRIL [Concomitant]
     Indication: HYPERTENSION
  5. COREG [Concomitant]
     Indication: BLOOD PRESSURE ABNORMAL
     Dosage: 6.5MG, 1 TAB, TWICE DAILY
  6. COREG [Concomitant]
     Indication: BLOOD PRESSURE ABNORMAL
  7. LIALDA [Concomitant]
     Indication: CROHN^S DISEASE
  8. HUMALOG [Concomitant]
     Indication: DIABETES MELLITUS
     Dosage: WITH EACH MEAL
     Route: 058
  9. LEVEMIR [Concomitant]
     Indication: DIABETES MELLITUS
     Dosage: IN THE MORNING AND AT BEDTIME
  10. UNKNOWN MEDICATIONS [Concomitant]
     Indication: PRODUCT USED FOR UNKNOWN INDICATION
  11. OXYCODONE [Concomitant]
     Indication: CROHN^S DISEASE
  12. OXYCODONE [Concomitant]
     Indication: BACK PAIN
  13. MORPHINE ER [Concomitant]
     Indication: PAIN
  14. ATIVAN [Concomitant]
     Indication: INSOMNIA
     Dosage: AT NIGHT
  15. ATIVAN [Concomitant]
     Indication: ANXIETY

REACTIONS (8)
  - Hernia [Unknown]
  - Insomnia [Unknown]
  - Anxiety [Recovering/Resolving]
  - Abdominal adhesions [Unknown]
  - Inappropriate schedule of drug administration [Unknown]
  - Abdominal pain upper [Unknown]
  - Pain [Unknown]
  - Pain in extremity [Unknown]
